FAERS Safety Report 20001459 (Version 1)
Quarter: 2021Q4

REPORT INFORMATION
  Report Type: Report from Study
  Country: None (occurrence: BR)
  Receive Date: 20211027
  Receipt Date: 20211027
  Transmission Date: 20220303
  Serious: Yes (Other)
  Sender: FDA-Public Use
  Company Number: BR-ABBVIE-21K-020-4132525-00

PATIENT
  Sex: Female
  Weight: 78 kg

DRUGS (1)
  1. HUMIRA [Suspect]
     Active Substance: ADALIMUMAB
     Indication: Rheumatoid arthritis
     Dosage: 1 SYRINGE
     Route: 058
     Dates: start: 20171027

REACTIONS (8)
  - Umbilical hernia [Unknown]
  - Procedural haemorrhage [Unknown]
  - Thrombosis [Recovered/Resolved]
  - Syncope [Unknown]
  - Spider vein [Unknown]
  - Varicose vein [Not Recovered/Not Resolved]
  - Contusion [Unknown]
  - Hypertension [Not Recovered/Not Resolved]

NARRATIVE: CASE EVENT DATE: 20170101
